FAERS Safety Report 14112886 (Version 3)
Quarter: 2019Q2

REPORT INFORMATION
  Report Type: Spontaneous
  Country: None (occurrence: FR)
  Receive Date: 20171022
  Receipt Date: 20190405
  Transmission Date: 20190711
  Serious: Yes (Other)
  Sender: FDA-Public Use
  Company Number: FR-MERCK KGAA-2031106

PATIENT
  Age: 50 Year
  Sex: Female
  Weight: 87 kg

DRUGS (1)
  1. EUTHYROX [Suspect]
     Active Substance: LEVOTHYROXINE SODIUM
     Indication: HYPOTHYROIDISM
     Route: 048
     Dates: start: 20170901

REACTIONS (37)
  - Depressed mood [Recovering/Resolving]
  - Eczema [Recovering/Resolving]
  - Gastroenteritis [Recovering/Resolving]
  - Vertigo [Recovering/Resolving]
  - Eye swelling [Recovering/Resolving]
  - General physical health deterioration [Recovering/Resolving]
  - Nausea [Recovering/Resolving]
  - Rash [Recovering/Resolving]
  - Skin reaction [Recovering/Resolving]
  - Uterine pain [Recovering/Resolving]
  - Impaired driving ability [Recovering/Resolving]
  - Posture abnormal [Recovering/Resolving]
  - Abdominal pain [Recovering/Resolving]
  - Injury [Recovering/Resolving]
  - Dysphagia [Recovering/Resolving]
  - Throat irritation [Recovering/Resolving]
  - Terminal insomnia [Recovering/Resolving]
  - Visual impairment [Recovering/Resolving]
  - Loss of personal independence in daily activities [Recovering/Resolving]
  - Dry skin [Recovering/Resolving]
  - Fall [Recovering/Resolving]
  - Gait disturbance [Recovering/Resolving]
  - Pharyngeal oedema [Recovering/Resolving]
  - Muscle spasms [Recovering/Resolving]
  - Dermatitis allergic [Recovering/Resolving]
  - Diarrhoea [Recovering/Resolving]
  - Anxiety [Recovering/Resolving]
  - Diabetes mellitus inadequate control [Recovering/Resolving]
  - C-reactive protein increased [None]
  - Abdominal pain upper [Recovering/Resolving]
  - Pyrexia [Recovering/Resolving]
  - Asthenia [Recovering/Resolving]
  - Eye pruritus [Recovering/Resolving]
  - Insomnia [Recovering/Resolving]
  - Pruritus [Recovering/Resolving]
  - Dizziness [Recovering/Resolving]
  - Feeling abnormal [Recovering/Resolving]

NARRATIVE: CASE EVENT DATE: 2017
